FAERS Safety Report 12891233 (Version 1)
Quarter: 2016Q4

REPORT INFORMATION
  Report Type: Spontaneous
  Country: US (occurrence: US)
  Receive Date: 20161026
  Receipt Date: 20161026
  Transmission Date: 20170207
  Serious: Yes (Other)
  Sender: FDA-Public Use
  Company Number: None

PATIENT
  Age: 7 Year
  Sex: Female
  Weight: 36.9 kg

DRUGS (2)
  1. ZYRTEC [Concomitant]
     Active Substance: CETIRIZINE HYDROCHLORIDE
  2. MONTELUKAST [Suspect]
     Active Substance: MONTELUKAST SODIUM
     Indication: MULTIPLE ALLERGIES
     Dosage: ?          QUANTITY:1 TABLET(S);?
     Route: 048
     Dates: start: 20151021, end: 20160407

REACTIONS (9)
  - Screaming [None]
  - Abdominal pain upper [None]
  - Emotional disorder [None]
  - Rash [None]
  - Blister [None]
  - Crying [None]
  - Blood immunoglobulin A increased [None]
  - Headache [None]
  - Personality change [None]

NARRATIVE: CASE EVENT DATE: 20160408
